FAERS Safety Report 6456452-9 (Version None)
Quarter: 2009Q4

REPORT INFORMATION
  Report Type: 
  Country: None (occurrence: None)
  Receive Date: 20091125
  Receipt Date: 20091116
  Transmission Date: 20100525
  Serious: Yes (Other)
  Sender: FDA-Public Use
  Company Number: US-ELI_LILLY_AND_COMPANY-US200911005480

PATIENT
  Sex: Female

DRUGS (4)
  1. FORTEO [Suspect]
     Dosage: 20 UG, DAILY (1/D)
  2. FOSAMAX [Concomitant]
  3. BISPHOSPHONATES [Concomitant]
  4. SYNTHROID [Concomitant]
     Indication: THYROID DISORDER

REACTIONS (3)
  - BLOOD PARATHYROID HORMONE INCREASED [None]
  - BONE DENSITY DECREASED [None]
  - PARATHYROID TUMOUR [None]
